FAERS Safety Report 4750030-5 (Version None)
Quarter: 2005Q3

REPORT INFORMATION
  Report Type: 
  Country: None (occurrence: None)
  Receive Date: 20050822
  Receipt Date: 20050810
  Transmission Date: 20060218
  Serious: Yes (Hospitalization)
  Sender: FDA-Public Use
  Company Number: EM2005-0380

PATIENT
  Age: 21 Year
  Sex: Female
  Weight: 79 kg

DRUGS (3)
  1. MACROLIN [Suspect]
     Indication: HIV INFECTION
     Dosage: 4.5 MIU, SUBCUTAN.
     Route: 058
     Dates: start: 20050307
  2. COMBIVIR (LAMUVIDINE, ZIDOVUDINE0 [Concomitant]
  3. VIRAMUNE [Concomitant]

REACTIONS (3)
  - NAUSEA [None]
  - PYELONEPHRITIS ACUTE [None]
  - VOMITING [None]
